FAERS Safety Report 18756583 (Version 1)
Quarter: 2021Q1

REPORT INFORMATION
  Report Type: Spontaneous
  Country: US (occurrence: US)
  Receive Date: 20210118
  Receipt Date: 20210118
  Transmission Date: 20210419
  Serious: Yes (Hospitalization)
  Sender: FDA-Public Use
  Company Number: None

PATIENT
  Age: 41 Year
  Sex: Female

DRUGS (1)
  1. ZOLADEX [Suspect]
     Active Substance: GOSERELIN ACETATE
     Indication: POLYCYSTIC OVARIES
     Dosage: ?          OTHER FREQUENCY:EVERY 28 DAYS;?
     Route: 058

REACTIONS (2)
  - Product distribution issue [None]
  - Therapy interrupted [None]

NARRATIVE: CASE EVENT DATE: 20210115
